FAERS Safety Report 10027949 (Version 2)
Quarter: 2014Q1

REPORT INFORMATION
  Report Type: Report from Study
  Country: US (occurrence: US)
  Receive Date: 20140321
  Receipt Date: 20140327
  Transmission Date: 20141002
  Serious: Yes (Hospitalization)
  Sender: FDA-Public Use
  Company Number: US-JNJFOC-20140310708

PATIENT
  Age: 15 Year
  Sex: Female
  Weight: 49.35 kg

DRUGS (6)
  1. REMICADE [Suspect]
     Indication: CROHN^S DISEASE
     Route: 042
     Dates: start: 20080820, end: 201203
  2. HUMIRA [Concomitant]
     Indication: CROHN^S DISEASE
     Route: 065
     Dates: start: 20091102
  3. 5-ASA [Concomitant]
     Indication: CROHN^S DISEASE
     Route: 065
  4. PREDNISONE [Concomitant]
     Indication: CROHN^S DISEASE
     Route: 065
  5. FERROUS SULFATE [Concomitant]
     Route: 065
  6. IMURAN [Concomitant]
     Route: 065

REACTIONS (1)
  - Crohn^s disease [Recovered/Resolved]
